FAERS Safety Report 12504531 (Version 2)
Quarter: 2016Q3

REPORT INFORMATION
  Report Type: Spontaneous
  Country: US (occurrence: US)
  Receive Date: 20160628
  Receipt Date: 20160921
  Transmission Date: 20161109
  Serious: Yes (Hospitalization, Other)
  Sender: FDA-Public Use
  Company Number: US-009507513-1606USA010496

PATIENT
  Sex: Female
  Weight: 65.76 kg

DRUGS (2)
  1. NUVARING [Suspect]
     Active Substance: ETHINYL ESTRADIOL\ETONOGESTREL
     Indication: CONTRACEPTION
     Dosage: UNK
     Route: 067
     Dates: start: 200910, end: 201008
  2. NUVARING [Suspect]
     Active Substance: ETHINYL ESTRADIOL\ETONOGESTREL
     Dosage: UNK, UNKNOWN
     Route: 067
     Dates: start: 201403, end: 20140711

REACTIONS (12)
  - Pain [Unknown]
  - Tonsillectomy [Unknown]
  - Pulmonary embolism [Not Recovered/Not Resolved]
  - Dyspepsia [Unknown]
  - Varicose vein [Unknown]
  - Cholecystectomy [Unknown]
  - Infection [Unknown]
  - Ovarian cyst [Unknown]
  - Infection [Unknown]
  - Infection [Unknown]
  - Deep vein thrombosis [Unknown]
  - Neuralgia [Unknown]

NARRATIVE: CASE EVENT DATE: 201211
